FAERS Safety Report 10891279 (Version 9)
Quarter: 2016Q2

REPORT INFORMATION
  Report Type: Report from Study
  Country: US (occurrence: US)
  Receive Date: 20150306
  Receipt Date: 20160501
  Transmission Date: 20160815
  Serious: Yes (Hospitalization, Other)
  Sender: FDA-Public Use
  Company Number: US-AMGEN-USASP2015020609

PATIENT
  Age: 56 Year
  Sex: Female

DRUGS (7)
  1. ENBREL [Suspect]
     Active Substance: ETANERCEPT
     Dosage: 50 MG, 2 TIMES/WK
     Route: 065
  2. LACTULOSE. [Concomitant]
     Active Substance: LACTULOSE
     Dosage: UNK
  3. OXYCODONE [Concomitant]
     Active Substance: OXYCODONE
     Dosage: UNK
  4. ENBREL [Suspect]
     Active Substance: ETANERCEPT
     Indication: PSORIASIS
     Dosage: 50 MG, 2 TIMES/WK
     Route: 065
     Dates: start: 20041001
  5. ENBREL [Suspect]
     Active Substance: ETANERCEPT
     Dosage: 50 MG, QWK
     Route: 065
  6. HUMIRA [Concomitant]
     Active Substance: ADALIMUMAB
     Dosage: UNK
  7. DILAUDID [Concomitant]
     Active Substance: HYDROMORPHONE HYDROCHLORIDE
     Indication: COLITIS
     Dosage: 2 MG, UNK

REACTIONS (30)
  - Transfusion [Not Recovered/Not Resolved]
  - Seizure [Unknown]
  - Malaise [Not Recovered/Not Resolved]
  - Pruritus [Not Recovered/Not Resolved]
  - Eye swelling [Unknown]
  - Injection site pain [Unknown]
  - Mobility decreased [Not Recovered/Not Resolved]
  - Wound [Not Recovered/Not Resolved]
  - Contusion [Unknown]
  - Weight increased [Not Recovered/Not Resolved]
  - Peripheral swelling [Unknown]
  - Hospitalisation [Unknown]
  - Fluid retention [Unknown]
  - Ammonia increased [Unknown]
  - Renal disorder [Not Recovered/Not Resolved]
  - Pain [Unknown]
  - Erythema [Unknown]
  - Burning sensation [Unknown]
  - Dry skin [Not Recovered/Not Resolved]
  - Depression [Unknown]
  - Memory impairment [Unknown]
  - Confusional state [Not Recovered/Not Resolved]
  - Rash [Unknown]
  - Dysphonia [Unknown]
  - Hepatic cirrhosis [Unknown]
  - Hypertension [Unknown]
  - Somnolence [Unknown]
  - Colitis [Recovered/Resolved]
  - Portal shunt [Unknown]
  - Dyspnoea [Unknown]

NARRATIVE: CASE EVENT DATE: 2015
